FAERS Safety Report 10003310 (Version 2)
Quarter: 2014Q1

REPORT INFORMATION
  Report Type: Spontaneous
  Country: US (occurrence: US)
  Receive Date: 20140312
  Receipt Date: 20140312
  Transmission Date: 20141002
  Serious: No
  Sender: FDA-Public Use
  Company Number: US-GILEAD-2012-0063271

PATIENT
  Sex: Female

DRUGS (11)
  1. LETAIRIS [Suspect]
     Indication: PULMONARY ARTERIAL HYPERTENSION
     Dosage: 5 MG, UNK
     Route: 048
     Dates: start: 20110706
  2. ADCIRCA [Suspect]
  3. SPIRIVA HANDIHALER [Concomitant]
  4. LYRICA [Concomitant]
  5. NEXIUM                             /01479302/ [Concomitant]
  6. METOPROLOL [Concomitant]
  7. TRIAMTERENE [Concomitant]
  8. ZOCOR [Concomitant]
  9. ASPIRIN [Concomitant]
  10. XANAX [Concomitant]
  11. ADVAIR [Concomitant]

REACTIONS (1)
  - Back pain [Recovered/Resolved]
